FAERS Safety Report 4334446-7 (Version None)
Quarter: 2004Q2

REPORT INFORMATION
  Report Type: 
  Country: None (occurrence: None)
  Receive Date: 20040405
  Receipt Date: 20040324
  Transmission Date: 20050107
  Serious: Yes (Other)
  Sender: FDA-Public Use
  Company Number: HQ6320223JAN2003

PATIENT
  Age: 67 Year
  Sex: Female

DRUGS (12)
  1. DIMETAPP [Suspect]
     Dosage: ORAL
     Route: 048
     Dates: start: 19980901
  2. ALKA-SELTZER PLUS COLD (ACETYLSALICYLIC ACID/CHLORPHENAMINE MALEATE/PH [Suspect]
     Dosage: ORAL
     Route: 048
     Dates: start: 19980901
  3. ALKA-SELTZER PLUS MAXIMUM STRENGTH SINUS (ACETYLSALICYLIC ACID/BROMPHE [Suspect]
     Dosage: ORAL
     Route: 048
     Dates: start: 19980901
  4. CHLOR-TRIMETON SINUS (CHLORPHENIMRAINE MALEATE/PARACETAMOL/PHENYLPROPA [Suspect]
     Dosage: ORAL
     Route: 048
     Dates: start: 19980901
  5. CHLORPHENIRAMINE MALEATE [Suspect]
     Dosage: ORAL
     Route: 048
     Dates: start: 19980901
  6. CONTAC 12 HOUR [Suspect]
     Dosage: ORAL
     Route: 048
     Dates: start: 19980901
  7. CORICIDIN [Suspect]
     Dosage: ORAL
     Route: 048
     Dates: start: 19980901
  8. DIMETANE-DC [Suspect]
     Dosage: DOSE ^PERIODICALLY THROUGHOUT ADULTHOOD AS NEEDED^, ORAL
     Route: 048
     Dates: start: 19980901
  9. HALL'S MENTHO-LYPTUS (EUCALYPTUS OIL/MENTHOL, ) [Suspect]
     Dosage: ORAL
     Route: 048
     Dates: start: 19980901
  10. TAVIST D [Suspect]
     Dosage: ORAL
     Route: 048
     Dates: start: 19980901
  11. UNKNOWN (UNKNOWN, ) [Suspect]
     Dosage: ORAL
     Route: 048
     Dates: start: 19980901
  12. UNKNOWN (UNKNOWN, ) [Suspect]
     Dosage: ORAL
     Route: 048
     Dates: start: 19980901

REACTIONS (1)
  - CEREBROVASCULAR ACCIDENT [None]
